FAERS Safety Report 15648472 (Version 2)
Quarter: 2018Q4

REPORT INFORMATION
  Report Type: Spontaneous
  Country: US (occurrence: US)
  Receive Date: 20181122
  Receipt Date: 20181128
  Transmission Date: 20190205
  Serious: Yes (Other)
  Sender: FDA-Public Use
  Company Number: US-BRISTOL-MYERS SQUIBB COMPANY-BMS-2018-108752

PATIENT
  Age: 23 Year
  Sex: Female

DRUGS (1)
  1. TRIAMCINOLONE ACETONIDE. [Suspect]
     Active Substance: TRIAMCINOLONE ACETONIDE
     Indication: ARTHRALGIA
     Dosage: UNK
     Route: 065

REACTIONS (4)
  - Skin depigmentation [Recovering/Resolving]
  - Pain [Recovering/Resolving]
  - Soft tissue atrophy [Recovering/Resolving]
  - Product use in unapproved indication [Unknown]
